FAERS Safety Report 9840998 (Version 2)
Quarter: 2014Q1

REPORT INFORMATION
  Report Type: Report from Study
  Country: US (occurrence: US)
  Receive Date: 20140124
  Receipt Date: 20140224
  Transmission Date: 20141002
  Serious: Yes (Death, Hospitalization, Other)
  Sender: FDA-Public Use
  Company Number: US-ASTELLAS-2014US000545

PATIENT
  Age: 78 Year
  Sex: Male

DRUGS (18)
  1. ERLOTINIB TABLET [Suspect]
     Indication: LUNG NEOPLASM MALIGNANT
     Dosage: 100 MG, UID/QD
     Route: 048
     Dates: start: 20130705, end: 20131224
  2. TAMSULOSIN [Concomitant]
     Indication: PRODUCT USED FOR UNKNOWN INDICATION
     Dosage: UNK
     Route: 065
  3. ZOLOFT [Concomitant]
     Indication: DEPRESSION
     Dosage: 100 MG, UID/QD
     Route: 048
     Dates: start: 20120322
  4. NORCO [Concomitant]
     Indication: PAIN
     Dosage: 5/325-1-2 TABLETS EVERY 4 HRS
     Route: 065
  5. LEVAQUIN [Concomitant]
     Indication: PRODUCT USED FOR UNKNOWN INDICATION
     Dosage: 750 MG, UID/QD-10DAYS
     Route: 065
  6. LACTOBACILLUS [Concomitant]
     Indication: PROBIOTIC THERAPY
     Dosage: 1 TABLET DAILY-10 DAYS
     Route: 065
  7. DOXYCYCLINE [Concomitant]
     Indication: PRODUCT USED FOR UNKNOWN INDICATION
     Dosage: 100 MG, BID-10 DAYS
     Route: 065
  8. PANTOPRAZOLE SODIUM [Concomitant]
     Indication: GASTROOESOPHAGEAL REFLUX DISEASE
     Dosage: 40 MG, UID/QD
     Route: 048
     Dates: start: 20110120
  9. PANTOPRAZOLE SODIUM [Concomitant]
     Dosage: UNK
     Route: 065
  10. TYLENOL                            /00020001/ [Concomitant]
     Indication: PYREXIA
     Dosage: 650-1-2-TABLETS EVERY 4 HOURS
     Route: 065
  11. TYLENOL                            /00020001/ [Concomitant]
     Indication: HEADACHE
  12. LIPITOR [Concomitant]
     Indication: PRODUCT USED FOR UNKNOWN INDICATION
     Dosage: 10 MG, UNKNOWN/D
     Route: 065
  13. LASIX                              /00032601/ [Concomitant]
     Indication: PRODUCT USED FOR UNKNOWN INDICATION
     Dosage: UNK
     Route: 065
  14. NITROGLYCERIN [Concomitant]
     Indication: CHEST PAIN
     Dosage: 0.4 MG, PRN-EVERY 5 MINUTES
     Route: 060
  15. VITAMIN B12                        /00056201/ [Concomitant]
     Indication: PRODUCT USED FOR UNKNOWN INDICATION
     Dosage: UNK
     Route: 065
  16. NICOTINE [Concomitant]
     Indication: PRODUCT USED FOR UNKNOWN INDICATION
     Dosage: TOPICALLY DAILY
     Route: 062
  17. ZOFRAN                             /00955301/ [Concomitant]
     Indication: NAUSEA
     Dosage: 4 MG, Q6 HOURS
     Route: 048
  18. ZOFRAN                             /00955301/ [Concomitant]
     Indication: VOMITING

REACTIONS (4)
  - Incorrect dose administered [Unknown]
  - Death [Fatal]
  - Pneumonia [Recovering/Resolving]
  - Malignant neoplasm progression [Unknown]
